FAERS Safety Report 19723624 (Version 2)
Quarter: 2021Q3

REPORT INFORMATION
  Report Type: Spontaneous
  Country: US (occurrence: US)
  Receive Date: 20210819
  Receipt Date: 20210824
  Transmission Date: 20211014
  Serious: Yes (Hospitalization, Other)
  Sender: FDA-Public Use
  Company Number: US-TEVA-2021-US-1942284

PATIENT
  Age: 49 Year
  Sex: Female

DRUGS (13)
  1. FENTANYL. [Suspect]
     Active Substance: FENTANYL
     Indication: CENTRAL PAIN SYNDROME
     Dosage: RECEIVED 100MICROG/HOUR EVERY 48 HOURS
     Route: 062
  2. KETAMINE [Suspect]
     Active Substance: KETAMINE
     Indication: CENTRAL PAIN SYNDROME
     Dosage: 150 MILLIGRAM DAILY; RECEIVED THREE TIMES A DAY
     Route: 048
     Dates: start: 2019
  3. FENTANYL. [Suspect]
     Active Substance: FENTANYL
     Indication: CENTRAL PAIN SYNDROME
     Dosage: RECEIVED 25MICROG/HOUR EVERY 72 HOURS
     Route: 062
  4. KETAMINE [Suspect]
     Active Substance: KETAMINE
     Indication: CENTRAL PAIN SYNDROME
     Dosage: 90 MILLIGRAM DAILY; RECEIVED THREE TIMES A DAY
     Route: 048
     Dates: start: 2019
  5. BACLOFEN. [Suspect]
     Active Substance: BACLOFEN
     Indication: CENTRAL PAIN SYNDROME
     Dosage: 5 MILLIGRAM DAILY;
     Route: 065
  6. OXYCODONE [Suspect]
     Active Substance: OXYCODONE
     Indication: CENTRAL PAIN SYNDROME
     Dosage: 180 MILLIGRAM DAILY; AS NEEDED
     Route: 065
  7. DULOXETINE. [Suspect]
     Active Substance: DULOXETINE
     Indication: CENTRAL PAIN SYNDROME
     Dosage: 120 MILLIGRAM DAILY;
     Route: 065
  8. PREGABALIN. [Suspect]
     Active Substance: PREGABALIN
     Indication: CENTRAL PAIN SYNDROME
     Dosage: 225 MILLIGRAM DAILY;
     Route: 065
  9. KETAMINE [Suspect]
     Active Substance: KETAMINE
     Indication: CENTRAL PAIN SYNDROME
     Dosage: RECEIVED THREE TIMES A DAY
     Route: 048
     Dates: start: 20190725
  10. KETAMINE [Suspect]
     Active Substance: KETAMINE
     Indication: CENTRAL PAIN SYNDROME
     Dosage: 120 MILLIGRAM DAILY; RECEIVED THREE TIMES A DAY
     Route: 048
     Dates: start: 2019
  11. APIXABAN [Concomitant]
     Active Substance: APIXABAN
     Indication: PULMONARY EMBOLISM
     Dosage: 10 MILLIGRAM DAILY;
     Route: 065
  12. ALPRAZOLAM. [Suspect]
     Active Substance: ALPRAZOLAM
     Indication: CENTRAL PAIN SYNDROME
     Dosage: 2 MILLIGRAM DAILY;
     Route: 065
  13. AMITRIPTYLINE [Suspect]
     Active Substance: AMITRIPTYLINE
     Indication: CENTRAL PAIN SYNDROME
     Dosage: 25 MILLIGRAM DAILY; AT BEDTIME
     Route: 065

REACTIONS (7)
  - Sedation [Unknown]
  - Constipation [Unknown]
  - Fatigue [Recovering/Resolving]
  - Hyperaesthesia [Unknown]
  - Treatment failure [Unknown]
  - Off label use [Unknown]
  - Loss of personal independence in daily activities [Recovering/Resolving]

NARRATIVE: CASE EVENT DATE: 20190725
